FAERS Safety Report 9933316 (Version 2)
Quarter: 2014Q1

REPORT INFORMATION
  Report Type: Report from Study
  Country: US (occurrence: US)
  Receive Date: 20140228
  Receipt Date: 20140228
  Transmission Date: 20141002
  Serious: No
  Sender: FDA-Public Use
  Company Number: US-MYLANLABS-2013S1004695

PATIENT
  Age: 18 Year
  Sex: Male
  Weight: 68.04 kg

DRUGS (3)
  1. AMNESTEEM CAPSULES [Suspect]
     Indication: ACNE
     Route: 048
     Dates: start: 20121125, end: 20130201
  2. AMNESTEEM CAPSULES [Suspect]
     Indication: ACNE
     Route: 048
     Dates: start: 2013
  3. MYORISAN [Suspect]
     Indication: ACNE
     Route: 048
     Dates: start: 20121125, end: 20130201

REACTIONS (2)
  - Myalgia [Recovered/Resolved]
  - Asthenia [Recovered/Resolved]
